FAERS Safety Report 9113871 (Version 1)
Quarter: 2013Q1

REPORT INFORMATION
  Report Type: Spontaneous
  Country: US (occurrence: US)
  Receive Date: 20130128
  Receipt Date: 20130128
  Transmission Date: 20140127
  Serious: Yes (Hospitalization, Other)
  Sender: FDA-Public Use
  Company Number: US-RB-048992-13

PATIENT
  Age: 38 Year
  Sex: Female

DRUGS (5)
  1. SUBOXONE TABLET [Suspect]
     Indication: DRUG DEPENDENCE
     Route: 060
     Dates: start: 2010, end: 2011
  2. SUBOXONE FILM [Suspect]
     Indication: DRUG DEPENDENCE
     Route: 060
     Dates: start: 2011, end: 2012
  3. SUBOXONE FILM [Suspect]
     Route: 060
     Dates: start: 2012
  4. INSULIN [Concomitant]
     Indication: DIABETES MELLITUS
     Dosage: SLIDING SCALE
     Route: 065
  5. BLOOD PRESSURE PILLS (NOT OTHERWISE SPECIFIED) [Concomitant]
     Indication: HYPERTENSION
     Dosage: DOSING DETAILS UNKNOWN
     Route: 065

REACTIONS (3)
  - Nephrolithiasis [Recovered/Resolved]
  - Pneumonia [Recovered/Resolved]
  - Condition aggravated [Recovered/Resolved]
